FAERS Safety Report 6021944-3 (Version None)
Quarter: 2008Q4

REPORT INFORMATION
  Report Type: 
  Country: None (occurrence: None)
  Receive Date: 20081229
  Receipt Date: 20081216
  Transmission Date: 20090506
  Serious: Yes (Death)
  Sender: FDA-Public Use
  Company Number: FR-ROCHE-603439

PATIENT
  Sex: Male

DRUGS (9)
  1. XELODA [Suspect]
     Indication: ADENOCARCINOMA
     Route: 048
     Dates: start: 20080208, end: 20080220
  2. GRANOCYTE 34 [Suspect]
     Indication: DRUG USE FOR UNKNOWN INDICATION
     Dosage: DOSAGE REPORTED AS 1 DOSE QD. FORM REPORTED AS INLECTABLE SOLUTION.
     Route: 058
     Dates: start: 20080210, end: 20080212
  3. EFFEXOR [Suspect]
     Indication: DRUG USE FOR UNKNOWN INDICATION
     Route: 048
     Dates: end: 20080221
  4. CADUET [Suspect]
     Indication: DRUG USE FOR UNKNOWN INDICATION
     Route: 048
     Dates: end: 20080219
  5. EPIRUBICIN HCL [Suspect]
     Indication: ADENOCARCINOMA
     Dosage: FORM: INJECTABLE SOLUTION. REPORTED THE PATIENT WAS TAKING HALF DOSE BECAUSE OF JAUNDICE.
     Route: 042
     Dates: start: 20080208, end: 20080208
  6. ELOXATIN [Suspect]
     Indication: ADENOCARCINOMA
     Dosage: FROM REPORTED AS LYOPHILISED.
     Route: 042
     Dates: start: 20080208, end: 20080208
  7. PRIMPERAN TAB [Concomitant]
     Dates: end: 20080222
  8. ZOPHREN [Concomitant]
     Dates: end: 20080222
  9. GRANOCYTE [Concomitant]
     Dates: end: 20080222

REACTIONS (1)
  - RENAL FAILURE ACUTE [None]
